FAERS Safety Report 18705672 (Version 1)
Quarter: 2021Q1

REPORT INFORMATION
  Report Type: Spontaneous
  Country: US (occurrence: US)
  Receive Date: 20210105
  Receipt Date: 20210105
  Transmission Date: 20210419
  Serious: Yes (Hospitalization, Other)
  Sender: FDA-Public Use
  Company Number: None

PATIENT
  Age: 79 Year
  Sex: Male
  Weight: 77.6 kg

DRUGS (1)
  1. BAMLANIVIMAB (EMERGENCY USE AUTHORIZATION) [Suspect]
     Active Substance: BAMLANIVIMAB
     Indication: COVID-19
     Dates: start: 20201231, end: 20201231

REACTIONS (3)
  - Pyrexia [None]
  - Tachycardia [None]
  - Chills [None]

NARRATIVE: CASE EVENT DATE: 20201231
